FAERS Safety Report 5254126-3 (Version None)
Quarter: 2007Q1

REPORT INFORMATION
  Report Type: 
  Country: None (occurrence: None)
  Receive Date: 20070302
  Receipt Date: 20070227
  Transmission Date: 20070707
  Serious: Yes (Disabling, Other)
  Sender: FDA-Public Use
  Company Number: US-BAYER-200710577BWH

PATIENT
  Age: 81 Year
  Sex: Female
  Weight: 55 kg

DRUGS (4)
  1. NEXAVAR [Suspect]
     Indication: METASTATIC RENAL CELL CARCINOMA
     Dosage: TOTAL DAILY DOSE: 800 MG  UNIT DOSE: 200 MG
     Route: 048
     Dates: start: 20070116, end: 20070128
  2. TENORMIN [Concomitant]
  3. HYDROCHLOROTHIAZIDE [Concomitant]
  4. THYROID TAB [Concomitant]

REACTIONS (12)
  - ABASIA [None]
  - ASTHENIA [None]
  - BLOOD PRESSURE INCREASED [None]
  - BODY TEMPERATURE INCREASED [None]
  - CEREBROVASCULAR ACCIDENT [None]
  - FATIGUE [None]
  - HYPOAESTHESIA [None]
  - LIP EXFOLIATION [None]
  - RASH GENERALISED [None]
  - SPEECH DISORDER [None]
  - STOMATITIS [None]
  - WEIGHT DECREASED [None]
